FAERS Safety Report 11477959 (Version 1)
Quarter: 2015Q3

REPORT INFORMATION
  Report Type: Spontaneous
  Country: US (occurrence: US)
  Receive Date: 20150909
  Receipt Date: 20150909
  Transmission Date: 20151125
  Serious: No
  Sender: FDA-Public Use
  Company Number: US-JAZZ-2015-US-007364

PATIENT
  Age: 58 Year
  Sex: Female
  Weight: 56.69 kg

DRUGS (6)
  1. LYRICA [Concomitant]
     Active Substance: PREGABALIN
     Indication: MYOCLONUS
     Dosage: UNK
     Dates: start: 20150429
  2. MULTIVITAMIN [Concomitant]
     Active Substance: VITAMINS
     Indication: PRODUCT USED FOR UNKNOWN INDICATION
     Dosage: UNK
     Route: 048
     Dates: start: 20150529
  3. PRAVASTATIN SODIUM. [Concomitant]
     Active Substance: PRAVASTATIN SODIUM
     Indication: PRODUCT USED FOR UNKNOWN INDICATION
     Dosage: UNK
     Route: 048
     Dates: start: 20150429
  4. XYREM [Suspect]
     Active Substance: SODIUM OXYBATE
     Indication: NARCOLEPSY
     Dosage: 2.25 G, BID
     Route: 048
     Dates: start: 20150513, end: 20150514
  5. XYREM [Suspect]
     Active Substance: SODIUM OXYBATE
     Indication: CATAPLEXY
     Dosage: 1 G, BID
     Route: 048
     Dates: start: 20150515, end: 20150517
  6. LYRICA [Concomitant]
     Active Substance: PREGABALIN
     Indication: MYOCLONUS
     Dosage: UNK
     Dates: start: 20150429

REACTIONS (13)
  - Snoring [Not Recovered/Not Resolved]
  - Negative thoughts [Recovered/Resolved]
  - Anxiety [Not Recovered/Not Resolved]
  - Epistaxis [Not Recovered/Not Resolved]
  - Tinnitus [Recovered/Resolved]
  - Dyspnoea [Not Recovered/Not Resolved]
  - Palpitations [Not Recovered/Not Resolved]
  - Dyskinesia [Not Recovered/Not Resolved]
  - Nasal congestion [Not Recovered/Not Resolved]
  - Paraesthesia [Recovering/Resolving]
  - Emotional disorder [Unknown]
  - Feeling jittery [Unknown]
  - Headache [Recovering/Resolving]

NARRATIVE: CASE EVENT DATE: 20150513
